FAERS Safety Report 7133225-5 (Version None)
Quarter: 2010Q4

REPORT INFORMATION
  Report Type: 
  Country: None (occurrence: None)
  Receive Date: 20101117
  Receipt Date: 20101102
  Transmission Date: 20110411
  Serious: Yes (Other)
  Sender: FDA-Public Use
  Company Number: 1PC201011-000290

PATIENT
  Age: 65 Year
  Sex: Male

DRUGS (1)
  1. METFORMIN HCL [Suspect]

REACTIONS (4)
  - ABDOMINAL MASS [None]
  - FLUID INTAKE REDUCED [None]
  - HYPOPHAGIA [None]
  - NEUROGENIC BLADDER [None]
